FAERS Safety Report 23146416 (Version 2)
Quarter: 2024Q1

REPORT INFORMATION
  Report Type: Spontaneous
  Country: US (occurrence: US)
  Receive Date: 20231104
  Receipt Date: 20240201
  Transmission Date: 20240410
  Serious: No
  Sender: FDA-Public Use
  Company Number: US-GLENMARK PHARMACEUTICALS-2023GMK084649

PATIENT

DRUGS (1)
  1. RYALTRIS [Suspect]
     Active Substance: MOMETASONE FUROATE MONOHYDRATE\OLOPATADINE HYDROCHLORIDE
     Indication: Rhinitis
     Dosage: 1 DOSAGE FORM, BID
     Route: 045
     Dates: start: 202306

REACTIONS (9)
  - Discomfort [Recovered/Resolved]
  - Wrong technique in device usage process [Unknown]
  - Drug dose omission by device [Unknown]
  - Product use issue [Unknown]
  - Ill-defined disorder [Recovered/Resolved]
  - Incorrect dose administered [Unknown]
  - Device delivery system issue [Unknown]
  - Drug ineffective for unapproved indication [Unknown]
  - Device physical property issue [Unknown]
